FAERS Safety Report 7909530-9 (Version None)
Quarter: 2011Q4

REPORT INFORMATION
  Report Type: 
  Country: None (occurrence: None)
  Receive Date: 20111111
  Receipt Date: 20111104
  Transmission Date: 20120403
  Serious: No
  Sender: FDA-Public Use
  Company Number: US-BAYER-2011-107650

PATIENT
  Age: 31 Year
  Sex: Female

DRUGS (6)
  1. BETASERON [Suspect]
     Dosage: 0.25 MG, QOD (WEEKS 5-6)
     Route: 058
  2. XANAX [Concomitant]
     Dosage: UNK
  3. NEURONTIN [Concomitant]
     Dosage: UNK
  4. BETASERON [Suspect]
     Dosage: 0.25 MG, QOD (WEEKS 7 +)
     Route: 058
  5. BETASERON [Suspect]
     Dosage: 0.25 MG, QOD (WEEKS 1-2)
     Route: 058
  6. BETASERON [Suspect]
     Dosage: 0.25 MG, QOD (WEEKS 3-4)
     Route: 058

REACTIONS (2)
  - INJECTION SITE HAEMATOMA [None]
  - INFLUENZA LIKE ILLNESS [None]
